FAERS Safety Report 5678923-5 (Version None)
Quarter: 2008Q1

REPORT INFORMATION
  Report Type: 
  Country: None (occurrence: None)
  Receive Date: 20080325
  Receipt Date: 20080320
  Transmission Date: 20080703
  Serious: Yes (Death)
  Sender: FDA-Public Use
  Company Number: PHBS2008FR03507

PATIENT
  Sex: Male

DRUGS (2)
  1. CIBADREX [Suspect]
     Dates: start: 20021101
  2. FLECAINIDE ACETATE [Suspect]
     Dates: start: 20021101

REACTIONS (1)
  - DEATH [None]
